FAERS Safety Report 21931153 (Version 2)
Quarter: 2023Q1

REPORT INFORMATION
  Report Type: Report from Study
  Country: EG (occurrence: EG)
  Receive Date: 20230131
  Receipt Date: 20230211
  Transmission Date: 20230418
  Serious: Yes (Other)
  Sender: FDA-Public Use
  Company Number: EG-002147023-NVSC2023EG017157

PATIENT
  Age: 47 Year
  Sex: Female

DRUGS (3)
  1. HYRIMOZ [Suspect]
     Active Substance: ADALIMUMAB-ADAZ
     Indication: Hidradenitis
     Dosage: (4 SYRINGES AT WEEK 0, 2 SYRINGES AT WEEK 2, 2 SYRINGES EVERY OTHER WEEK)
     Route: 065
     Dates: start: 20220221, end: 202204
  2. NOVORAPID [Concomitant]
     Active Substance: INSULIN ASPART
     Indication: Diabetes mellitus
     Dosage: 20 IU (BEFORE BREAKFAST AND LUNCH)
     Route: 065
     Dates: start: 2017
  3. CONCOR 5 PLUS [Concomitant]
     Indication: Hypertension
     Dosage: 1 DOSAGE FORM, QD (MORNING)
     Route: 065
     Dates: start: 2018

REACTIONS (6)
  - Haemoglobin decreased [Unknown]
  - Anaemia [Unknown]
  - Condition aggravated [Not Recovered/Not Resolved]
  - Discharge [Not Recovered/Not Resolved]
  - Ulcer [Not Recovered/Not Resolved]
  - Drug ineffective [Not Recovered/Not Resolved]

NARRATIVE: CASE EVENT DATE: 20220301
